FAERS Safety Report 8326143-8 (Version None)
Quarter: 2012Q2

REPORT INFORMATION
  Report Type: 
  Country: None (occurrence: None)
  Receive Date: 20120501
  Receipt Date: 20120423
  Transmission Date: 20120825
  Serious: Yes (Other)
  Sender: FDA-Public Use
  Company Number: US-ASTRAZENECA-2012SE26411

PATIENT
  Age: 50 Year
  Sex: Female
  Weight: 59 kg

DRUGS (2)
  1. NEXIUM [Suspect]
     Indication: ULCER
     Route: 048
  2. NEXIUM [Suspect]
     Indication: DYSPEPSIA
     Route: 048

REACTIONS (7)
  - INTENTIONAL DRUG MISUSE [None]
  - ROTATOR CUFF SYNDROME [None]
  - DYSPEPSIA [None]
  - OFF LABEL USE [None]
  - WEIGHT INCREASED [None]
  - FALL [None]
  - ABDOMINAL PAIN UPPER [None]
